FAERS Safety Report 23523073 (Version 1)
Quarter: 2024Q1

REPORT INFORMATION
  Report Type: Spontaneous
  Country: US (occurrence: None)
  Receive Date: 20240214
  Receipt Date: 20240214
  Transmission Date: 20240410
  Serious: Yes (Hospitalization)
  Sender: FDA-Public Use
  Company Number: None

PATIENT
  Sex: Male

DRUGS (4)
  1. XOLAIR [Suspect]
     Active Substance: OMALIZUMAB
     Indication: Asthma
     Dates: start: 20190813
  2. ALBUTEROL NEB 1.25 [Concomitant]
  3. PREDNISONE TAB 20MG [Concomitant]
  4. SYMBICORT AER 160-4.5 [Concomitant]

REACTIONS (2)
  - Spinal operation [None]
  - Quality of life decreased [None]
